FAERS Safety Report 5152128-9 (Version None)
Quarter: 2006Q4

REPORT INFORMATION
  Report Type: 
  Country: None (occurrence: None)
  Receive Date: 20061114
  Receipt Date: 20061114
  Transmission Date: 20070319
  Serious: Yes (Life-Threatening, Other)
  Sender: FDA-Public Use
  Company Number: None

PATIENT
  Age: 76 Year
  Sex: Male
  Weight: 79.3795 kg

DRUGS (3)
  1. LYRICA [Suspect]
     Indication: NEURALGIA
     Dosage: 75 MG DAILY, QHS PO } 7 MONTHS
     Route: 048
     Dates: start: 20060329, end: 20061113
  2. LYRICA [Suspect]
     Indication: PARAESTHESIA
     Dosage: 75 MG DAILY, QHS PO } 7 MONTHS
     Route: 048
     Dates: start: 20060329, end: 20061113
  3. LISINOPRIL + HYDROCHLORTHIAZIDE [Concomitant]

REACTIONS (6)
  - DRUG DEPENDENCE [None]
  - EYE PAIN [None]
  - HEADACHE [None]
  - HYPOTENSION [None]
  - PAIN IN EXTREMITY [None]
  - VOMITING [None]
